FAERS Safety Report 16822754 (Version 1)
Quarter: 2019Q3

REPORT INFORMATION
  Report Type: Spontaneous
  Country: FR (occurrence: FR)
  Receive Date: 20190918
  Receipt Date: 20190918
  Transmission Date: 20191005
  Serious: Yes (Hospitalization)
  Sender: FDA-Public Use
  Company Number: FR-BAUSCH-BL-2019-026043

PATIENT
  Age: 81 Year
  Sex: Female
  Weight: 80 kg

DRUGS (7)
  1. TEMESTA (LORAZEPAM) [Suspect]
     Active Substance: LORAZEPAM
     Indication: SUICIDE ATTEMPT
     Dosage: TABLET BREAKABLE, 1 TOTAL
     Route: 048
     Dates: start: 20190829, end: 20190829
  2. AMLODIPINE [Suspect]
     Active Substance: AMLODIPINE BESYLATE
     Indication: SUICIDE ATTEMPT
     Dosage: 1 TOTAL
     Route: 048
     Dates: start: 20190829, end: 20190829
  3. LEVOTHYROX [Suspect]
     Active Substance: LEVOTHYROXINE
     Indication: SUICIDE ATTEMPT
     Dosage: TABLET BREAKABLE
     Route: 048
     Dates: start: 20190829, end: 20190829
  4. PARACETAMOL [Suspect]
     Active Substance: ACETAMINOPHEN
     Indication: SUICIDE ATTEMPT
     Route: 048
     Dates: start: 20190829, end: 20190829
  5. FENOFIBRATE. [Suspect]
     Active Substance: FENOFIBRATE
     Indication: SUICIDE ATTEMPT
     Dosage: 1 TOTAL
     Route: 048
     Dates: start: 20190829, end: 20190829
  6. DIFFU K [Suspect]
     Active Substance: POTASSIUM CHLORIDE
     Indication: SUICIDE ATTEMPT
     Dosage: 1 TOTAL
     Route: 048
     Dates: start: 20190829, end: 20190829
  7. VENLAFAXINE BLUEFISH LP [Suspect]
     Active Substance: VENLAFAXINE HYDROCHLORIDE
     Indication: SUICIDE ATTEMPT
     Dosage: 1 TOTAL
     Route: 048
     Dates: start: 20190829, end: 20190829

REACTIONS (3)
  - Somnolence [Recovered/Resolved]
  - Agitation [Recovered/Resolved]
  - Disorientation [Recovered/Resolved]

NARRATIVE: CASE EVENT DATE: 20190829
